FAERS Safety Report 7987191-0 (Version None)
Quarter: 2011Q4

REPORT INFORMATION
  Report Type: 
  Country: None (occurrence: None)
  Receive Date: 20111216
  Receipt Date: 20111018
  Transmission Date: 20120403
  Serious: No
  Sender: FDA-Public Use
  Company Number: US-BRISTOL-MYERS SQUIBB COMPANY-16147340

PATIENT
  Age: 15 Year
  Sex: Female

DRUGS (4)
  1. WELLBUTRIN XL [Concomitant]
  2. ABILIFY [Suspect]
     Indication: BORDERLINE PERSONALITY DISORDER
     Dosage: DURATION:ABOUT A YEAR; EVERY MORNING
     Route: 048
     Dates: start: 20100901
  3. ABILIFY [Suspect]
     Indication: DEPRESSION
     Dosage: DURATION:ABOUT A YEAR; EVERY MORNING
     Route: 048
     Dates: start: 20100901
  4. PROZAC [Concomitant]
     Indication: OBSESSIVE-COMPULSIVE DISORDER
     Dosage: AT NIGHT

REACTIONS (2)
  - IMPULSIVE BEHAVIOUR [None]
  - AGGRESSION [None]
